FAERS Safety Report 11229381 (Version 1)
Quarter: 2015Q2

REPORT INFORMATION
  Report Type: Spontaneous
  Country: JP (occurrence: JP)
  Receive Date: 20150630
  Receipt Date: 20150630
  Transmission Date: 20150821
  Serious: Yes (Other)
  Sender: FDA-Public Use
  Company Number: JP-009507513-1503JPN000940

PATIENT
  Sex: Female

DRUGS (1)
  1. MENESIT TABLETS - 100 [Suspect]
     Active Substance: CARBIDOPA\LEVODOPA
     Dosage: 50 MG TWICE A DAY (100 MG WAS DIVIDED INTO TWICE A DAY SO THE DOSE WAS VERY FEW)
     Route: 048

REACTIONS (1)
  - Cerebral infarction [Unknown]
